FAERS Safety Report 4701569-X (Version None)
Quarter: 2005Q2

REPORT INFORMATION
  Report Type: 
  Country: None (occurrence: None)
  Receive Date: 20050628
  Receipt Date: 20050615
  Transmission Date: 20051028
  Serious: Yes (Hospitalization)
  Sender: FDA-Public Use
  Company Number: 2005AP03372

PATIENT
  Age: 71 Year
  Sex: Female

DRUGS (2)
  1. TAMOXIFEN [Suspect]
     Indication: BREAST CANCER
     Route: 048
     Dates: start: 19900201, end: 19950201
  2. UFT [Concomitant]
     Route: 048
     Dates: start: 19900201, end: 19950201

REACTIONS (2)
  - PANCREATIC CARCINOMA [None]
  - UTERINE CANCER [None]
